FAERS Safety Report 7957921-2 (Version None)
Quarter: 2011Q4

REPORT INFORMATION
  Report Type: 
  Country: None (occurrence: None)
  Receive Date: 20111205
  Receipt Date: 20111201
  Transmission Date: 20120403
  Serious: Yes (Death, Other)
  Sender: FDA-Public Use
  Company Number: GB-ABBOTT-11P-167-0839911-00

PATIENT
  Sex: Male

DRUGS (2)
  1. UNSPECIFIED ANTACIDS [Concomitant]
     Indication: PRODUCT USED FOR UNKNOWN INDICATION
  2. HUMIRA [Suspect]
     Indication: PSORIASIS
     Route: 058
     Dates: start: 20080822, end: 20110224

REACTIONS (2)
  - CHEST PAIN [None]
  - CARDIAC ARREST [None]
